FAERS Safety Report 11909818 (Version 3)
Quarter: 2016Q1

REPORT INFORMATION
  Report Type: Spontaneous
  Country: US (occurrence: US)
  Receive Date: 20160112
  Receipt Date: 20160226
  Transmission Date: 20160526
  Serious: Yes (Hospitalization)
  Sender: FDA-Public Use
  Company Number: US-BEH-2015057479

PATIENT
  Age: 55 Year
  Sex: Female
  Weight: 139 kg

DRUGS (25)
  1. ZEMAIRA [Suspect]
     Active Substance: .ALPHA.1-PROTEINASE INHIBITOR HUMAN
     Indication: STATUS ASTHMATICUS
     Route: 042
     Dates: start: 20130226
  2. ZEMAIRA [Suspect]
     Active Substance: .ALPHA.1-PROTEINASE INHIBITOR HUMAN
     Indication: STATUS ASTHMATICUS
     Route: 042
     Dates: start: 20130226
  3. EPIPEN [Concomitant]
     Active Substance: EPINEPHRINE
  4. VALACYCLOVIR [Concomitant]
     Active Substance: VALACYCLOVIR HYDROCHLORIDE
  5. VITAMIN D [Concomitant]
     Active Substance: CHOLECALCIFEROL
  6. NOVOLOG [Concomitant]
     Active Substance: INSULIN ASPART
  7. DOXYCYCLINE. [Concomitant]
     Active Substance: DOXYCYCLINE
  8. SODIUM CHLORIDE. [Concomitant]
     Active Substance: SODIUM CHLORIDE
  9. DILAUDID [Concomitant]
     Active Substance: HYDROMORPHONE HYDROCHLORIDE
  10. OXYGEN. [Concomitant]
     Active Substance: OXYGEN
  11. POTASSIUM [Concomitant]
     Active Substance: POTASSIUM
  12. METFORMIN [Concomitant]
     Active Substance: METFORMIN HYDROCHLORIDE
  13. LIDOCAINE. [Concomitant]
     Active Substance: LIDOCAINE
  14. COUMADIN [Concomitant]
     Active Substance: WARFARIN SODIUM
  15. XANAX [Concomitant]
     Active Substance: ALPRAZOLAM
  16. PULMICORT TURBUHALER [Concomitant]
     Active Substance: BUDESONIDE
  17. LEVEMIR [Concomitant]
     Active Substance: INSULIN DETEMIR
  18. CALCIUM [Concomitant]
     Active Substance: CALCIUM
  19. VITAMIN E [Concomitant]
     Active Substance: .ALPHA.-TOCOPHEROL
  20. VITAMIN B [Concomitant]
     Active Substance: VITAMIN B
  21. XOPENEX [Concomitant]
     Active Substance: LEVALBUTEROL HYDROCHLORIDE
  22. DIPHENHYDRAMINE. [Concomitant]
     Active Substance: DIPHENHYDRAMINE
  23. HYZAAR [Concomitant]
     Active Substance: HYDROCHLOROTHIAZIDE\LOSARTAN POTASSIUM
  24. PROCARDIA [Concomitant]
     Active Substance: NIFEDIPINE
  25. MULTIVITAMIN [Concomitant]
     Active Substance: VITAMINS

REACTIONS (1)
  - Lung disorder [Unknown]

NARRATIVE: CASE EVENT DATE: 20151228
